FAERS Safety Report 8775419 (Version 1)
Quarter: 2012Q4

REPORT INFORMATION
  Report Type: 
  Country: US (occurrence: US)
  Receive Date: 20120909
  Receipt Date: 20120909
  Transmission Date: 20130627
  Serious: No
  Sender: FDA-Public Use
  Company Number: US-009507513-1209USA001183

PATIENT

DRUGS (1)
  1. DIPROLENE AF [Suspect]
     Indication: RASH

REACTIONS (2)
  - Product quality issue [Unknown]
  - Drug ineffective [Unknown]
